FAERS Safety Report 6638403-7 (Version None)
Quarter: 2010Q1

REPORT INFORMATION
  Report Type: 
  Country: None (occurrence: None)
  Receive Date: 20100317
  Receipt Date: 20100308
  Transmission Date: 20100710
  Serious: Yes (Other)
  Sender: FDA-Public Use
  Company Number: B0640232A

PATIENT
  Age: 63 Year
  Sex: Female

DRUGS (3)
  1. ROSIGLITAZONE [Suspect]
     Route: 065
  2. METFORMIN HYDROCHLORIDE [Concomitant]
  3. GLICLAZIDE [Concomitant]

REACTIONS (2)
  - CEREBROVASCULAR ACCIDENT [None]
  - DYSARTHRIA [None]
